FAERS Safety Report 12441217 (Version 1)
Quarter: 2016Q2

REPORT INFORMATION
  Report Type: Spontaneous
  Country: GB (occurrence: GB)
  Receive Date: 20160607
  Receipt Date: 20160607
  Transmission Date: 20160815
  Serious: Yes (Hospitalization)
  Sender: FDA-Public Use
  Company Number: GB-ACCORD-041175

PATIENT
  Age: 84 Year
  Sex: Female

DRUGS (12)
  1. NICORANDIL [Concomitant]
     Active Substance: NICORANDIL
     Route: 048
  2. BISOPROLOL [Concomitant]
     Active Substance: BISOPROLOL
     Dosage: IN THE MORNING
     Route: 048
  3. METFORMIN [Concomitant]
     Active Substance: METFORMIN HYDROCHLORIDE
     Route: 048
  4. AMLODIPINE [Concomitant]
     Active Substance: AMLODIPINE BESYLATE
     Dosage: IN THE MORNING
     Route: 048
  5. BENDROFLUMETHIAZIDE [Concomitant]
     Active Substance: BENDROFLUMETHIAZIDE
     Dosage: IN THE MORNING
  6. ATORVASTATIN [Concomitant]
     Active Substance: ATORVASTATIN
     Dosage: AT NIGHT
     Route: 048
  7. MAGNASPARTATE [Concomitant]
     Dosage: SACHET
  8. ESOMEPRAZOLE/ESOMEPRAZOLE MAGNESIUM/ESOMEPRAZOLE SODIUM [Suspect]
     Active Substance: ESOMEPRAZOLE
     Indication: PRODUCT USED FOR UNKNOWN INDICATION
     Route: 048
     Dates: end: 20160514
  9. GLYCERYL TRINITRATE [Concomitant]
     Active Substance: NITROGLYCERIN
     Dosage: SPRAY
  10. LISINOPRIL. [Concomitant]
     Active Substance: LISINOPRIL
     Dosage: IN THE MORNING
     Route: 048
  11. COCODAMOL [Concomitant]
     Active Substance: ACETAMINOPHEN\CODEINE PHOSPHATE
     Dosage: 8/500?6 HOURLY
     Route: 048
  12. ACETYLSALICYLIC ACID [Concomitant]
     Active Substance: ASPIRIN
     Dosage: IN THE MORNING
     Route: 048

REACTIONS (7)
  - Nausea [Unknown]
  - Microcytic anaemia [Unknown]
  - Hypocalcaemia [Unknown]
  - Malaise [Unknown]
  - Decreased appetite [Unknown]
  - Hypomagnesaemia [Recovering/Resolving]
  - Hypokalaemia [Unknown]
